FAERS Safety Report 25052554 (Version 1)
Quarter: 2025Q1

REPORT INFORMATION
  Report Type: Other
  Country: GR (occurrence: GR)
  Receive Date: 20250307
  Receipt Date: 20250307
  Transmission Date: 20250409
  Serious: Yes (Hospitalization, Congenital Anomaly, Other)
  Sender: NUVO PHARMACEUTICALS
  Company Number: GR-Nuvo Pharmaceuticals Inc-2172438

PATIENT
  Sex: Female

DRUGS (3)
  1. DIAZEPAM [Suspect]
     Active Substance: DIAZEPAM
     Indication: Foetal exposure during pregnancy
  2. ARIPIPRAZOLE [Suspect]
     Active Substance: ARIPIPRAZOLE
  3. VALPROIC ACID [Suspect]
     Active Substance: VALPROIC ACID

REACTIONS (11)
  - Hypothyroidism [Unknown]
  - Foetal exposure during pregnancy [Unknown]
  - Hypotonia [Unknown]
  - Hypertonia [Unknown]
  - Neurodevelopmental delay [Unknown]
  - Astigmatism [Unknown]
  - Motor developmental delay [Unknown]
  - Dysmorphism [Unknown]
  - Deafness [Unknown]
  - Choroidal coloboma [Unknown]
  - Syndactyly [Unknown]
